FAERS Safety Report 21839700 (Version 1)
Quarter: 2023Q1

REPORT INFORMATION
  Report Type: Other
  Country: IT (occurrence: IT)
  Receive Date: 20230109
  Receipt Date: 20230109
  Transmission Date: 20230417
  Serious: Yes (Other)
  Sender: FDA-Public Use
  Company Number: IT-Bion-011012

PATIENT
  Age: 3 Year
  Sex: Male

DRUGS (1)
  1. IBUPROFEN [Suspect]
     Active Substance: IBUPROFEN
     Indication: Hyperthermia

REACTIONS (1)
  - Hypothermia [Recovered/Resolved]
